FAERS Safety Report 25923777 (Version 1)
Quarter: 2025Q4

REPORT INFORMATION
  Report Type: Spontaneous
  Country: US (occurrence: US)
  Receive Date: 20251015
  Receipt Date: 20251015
  Transmission Date: 20260118
  Serious: Yes (Other)
  Sender: HIKMA
  Company Number: US-HIKMA PHARMACEUTICALS-US-H14001-25-11164

PATIENT

DRUGS (9)
  1. ADRENALIN [Suspect]
     Active Substance: EPINEPHRINE
     Indication: Product used for unknown indication
     Dosage: UNKNOWN
     Route: 065
  2. AMOXICILLIN [Suspect]
     Active Substance: AMOXICILLIN
     Indication: Product used for unknown indication
     Dosage: UNKNOWN
     Route: 065
  3. CANNABIS SATIVA SUBSP. INDICA TOP [Suspect]
     Active Substance: CANNABIS SATIVA SUBSP. INDICA TOP
     Indication: Product used for unknown indication
     Dosage: UNKNOWN
     Route: 065
  4. FENTANYL CITRATE [Suspect]
     Active Substance: FENTANYL CITRATE
     Indication: Product used for unknown indication
     Dosage: UNKNOWN
     Route: 065
  5. HYDROMORPHONE [Suspect]
     Active Substance: HYDROMORPHONE
     Indication: Product used for unknown indication
     Dosage: UNKNOWN
     Route: 065
  6. KETAMINE [Suspect]
     Active Substance: KETAMINE
     Indication: Product used for unknown indication
     Dosage: UNKNOWN
     Route: 065
  7. CANNABIS SATIVA SUBSP. INDICA TOP [Suspect]
     Active Substance: CANNABIS SATIVA SUBSP. INDICA TOP
     Indication: Product used for unknown indication
     Dosage: UNKNOWN
     Route: 065
  8. METOPROLOL [Suspect]
     Active Substance: METOPROLOL
     Indication: Product used for unknown indication
     Dosage: UNKNOWN
     Route: 065
  9. OXYCODONE [Suspect]
     Active Substance: OXYCODONE
     Indication: Product used for unknown indication
     Dosage: UNKNOWN
     Route: 065

REACTIONS (2)
  - Cerebrovascular accident [Unknown]
  - Drug diversion [Unknown]
